FAERS Safety Report 21123476 (Version 2)
Quarter: 2022Q3

REPORT INFORMATION
  Report Type: Report from Study
  Country: US (occurrence: US)
  Receive Date: 20220724
  Receipt Date: 20220919
  Transmission Date: 20221027
  Serious: Yes (Other)
  Sender: FDA-Public Use
  Company Number: US-BRISTOL-MYERS SQUIBB COMPANY-2022-025231

PATIENT
  Age: 55 Year
  Sex: Female
  Weight: 71.6 kg

DRUGS (2)
  1. REVLIMID [Suspect]
     Active Substance: LENALIDOMIDE
     Indication: Plasma cell myeloma
     Dosage: BATCH NUMBER: A3730A  EXPIRY DATE: 31-AUG-2024.?  EXPIRY DATE: 30-SEP-2024. BATCH NUMBER: A3763A
     Route: 048
     Dates: start: 20211026
  2. VELCADE [Suspect]
     Active Substance: BORTEZOMIB
     Indication: Product used for unknown indication
     Route: 065

REACTIONS (6)
  - Peripheral swelling [Unknown]
  - Influenza like illness [Unknown]
  - Nausea [Unknown]
  - Gastric disorder [Unknown]
  - Diarrhoea [Not Recovered/Not Resolved]
  - Gastrointestinal disorder [Recovering/Resolving]
